FAERS Safety Report 17065660 (Version 1)
Quarter: 2019Q4

REPORT INFORMATION
  Report Type: Spontaneous
  Country: US (occurrence: US)
  Receive Date: 20191122
  Receipt Date: 20191122
  Transmission Date: 20200122
  Serious: No
  Sender: FDA-Public Use
  Company Number: US-LEO PHARMA-326522

PATIENT
  Age: 57 Year
  Sex: Male

DRUGS (1)
  1. PICATO [Suspect]
     Active Substance: INGENOL MEBUTATE
     Indication: ACTINIC KERATOSIS
     Dosage: TWO TUBES OF PICATO 0.015% ONCE A DAY FOR THREE DAYS. NEEDED THE TWO PRESCRIPTIONS TO COVER TREATMEN
     Route: 061
     Dates: start: 20191111, end: 20191113

REACTIONS (4)
  - Application site vesicles [Not Recovered/Not Resolved]
  - Application site erythema [Not Recovered/Not Resolved]
  - Application site exfoliation [Not Recovered/Not Resolved]
  - Application site pain [Not Recovered/Not Resolved]
